FAERS Safety Report 8564716-8 (Version None)
Quarter: 2012Q3

REPORT INFORMATION
  Report Type: 
  Country: None (occurrence: None)
  Receive Date: 20120803
  Receipt Date: 20120727
  Transmission Date: 20120928
  Serious: Yes (Hospitalization)
  Sender: FDA-Public Use
  Company Number: US-ABBOTT-12P-163-0956801-00

PATIENT
  Age: 38 Year
  Sex: Male

DRUGS (3)
  1. OIL [Concomitant]
     Indication: PRODUCT USED FOR UNKNOWN INDICATION
  2. VITAMIN D [Concomitant]
     Indication: PRODUCT USED FOR UNKNOWN INDICATION
  3. HUMIRA [Suspect]
     Indication: CROHN'S DISEASE
     Dates: start: 20120429, end: 20120709

REACTIONS (12)
  - WEIGHT DECREASED [None]
  - PYREXIA [None]
  - CROHN'S DISEASE [None]
  - NAUSEA [None]
  - DIARRHOEA [None]
  - CONDITION AGGRAVATED [None]
  - NIGHT SWEATS [None]
  - DRUG INEFFECTIVE [None]
  - VOMITING [None]
  - ABSCESS [None]
  - ASTHENIA [None]
  - INFECTION [None]
